FAERS Safety Report 7588640-2 (Version None)
Quarter: 2011Q3

REPORT INFORMATION
  Report Type: 
  Country: None (occurrence: None)
  Receive Date: 20110705
  Receipt Date: 20110530
  Transmission Date: 20111222
  Serious: Yes (Hospitalization, Other)
  Sender: FDA-Public Use
  Company Number: US-BAYER-2010-006238

PATIENT
  Sex: Female
  Weight: 70.295 kg

DRUGS (3)
  1. ADVIL LIQUI-GELS [Concomitant]
     Indication: HEADACHE
  2. LISINOPRIL [Concomitant]
  3. YASMIN [Suspect]
     Indication: ACNE
     Dosage: UNK
     Route: 048
     Dates: start: 19980101, end: 20030101

REACTIONS (7)
  - PAIN [None]
  - OVARIAN CANCER [None]
  - GALLBLADDER NON-FUNCTIONING [None]
  - OVARIAN ABSCESS [None]
  - HEPATIC NEOPLASM [None]
  - HEPATIC NEOPLASM MALIGNANT [None]
  - GALLBLADDER DISORDER [None]
